FAERS Safety Report 7804714-2 (Version None)
Quarter: 2011Q4

REPORT INFORMATION
  Report Type: 
  Country: None (occurrence: None)
  Receive Date: 20111010
  Receipt Date: 20110929
  Transmission Date: 20120403
  Serious: Yes (Other)
  Sender: FDA-Public Use
  Company Number: US-JNJFOC-20110904613

PATIENT
  Age: 16 Year
  Sex: Female
  Weight: 73.94 kg

DRUGS (3)
  1. REMICADE [Suspect]
     Route: 042
     Dates: start: 20060707
  2. REMICADE [Suspect]
     Indication: INFLAMMATORY BOWEL DISEASE
     Route: 042
     Dates: start: 20100216
  3. REMICADE [Suspect]
     Route: 042
     Dates: start: 20100803

REACTIONS (5)
  - CHEST PAIN [None]
  - STRESS [None]
  - TREMOR [None]
  - HEADACHE [None]
  - RASH [None]
